FAERS Safety Report 24001268 (Version 1)
Quarter: 2024Q2

REPORT INFORMATION
  Report Type: Spontaneous
  Country: US (occurrence: US)
  Receive Date: 20240621
  Receipt Date: 20240621
  Transmission Date: 20240716
  Serious: Yes (Hospitalization, Other)
  Sender: FDA-Public Use
  Company Number: US-OTSUKA-2024_017379

PATIENT
  Age: 35 Year
  Sex: Male

DRUGS (1)
  1. ARIPIPRAZOLE [Suspect]
     Active Substance: ARIPIPRAZOLE
     Indication: Product used for unknown indication
     Dosage: UNK
     Route: 065

REACTIONS (6)
  - Distributive shock [Unknown]
  - Renal tubular necrosis [Unknown]
  - Pancreatitis acute [Unknown]
  - Cardio-respiratory arrest [Unknown]
  - Hypertriglyceridaemia [Unknown]
  - Diabetic ketoacidosis [Unknown]
